FAERS Safety Report 15710799 (Version 1)
Quarter: 2018Q4

REPORT INFORMATION
  Report Type: Spontaneous
  Country: US (occurrence: US)
  Receive Date: 20181211
  Receipt Date: 20181211
  Transmission Date: 20190205
  Serious: No
  Sender: FDA-Public Use
  Company Number: US-SA-2018SA332549

PATIENT
  Age: 72 Year
  Sex: Female

DRUGS (3)
  1. CYCLOBENZAPRINE. [Concomitant]
     Active Substance: CYCLOBENZAPRINE
  2. NAPROXEN. [Concomitant]
     Active Substance: NAPROXEN
  3. PRALUENT [Suspect]
     Active Substance: ALIROCUMAB
     Indication: HYPERLIPIDAEMIA
     Dosage: 1 DF, QM
     Route: 058
     Dates: start: 20170509

REACTIONS (2)
  - Limb injury [Unknown]
  - Product use issue [Unknown]

NARRATIVE: CASE EVENT DATE: 201811
